FAERS Safety Report 6420813-4 (Version None)
Quarter: 2009Q4

REPORT INFORMATION
  Report Type: 
  Country: None (occurrence: None)
  Receive Date: 20091030
  Receipt Date: 20091019
  Transmission Date: 20100525
  Serious: Yes (Other)
  Sender: FDA-Public Use
  Company Number: US-SANOFI-SYNTHELABO-A03200904846

PATIENT
  Sex: Male

DRUGS (2)
  1. PARKISON'S DISEASE MEDICATION [Concomitant]
     Indication: PARKINSON'S DISEASE
     Dosage: UNK
     Route: 065
  2. UROXATRAL [Suspect]
     Indication: URINARY TRACT DISORDER
     Route: 048

REACTIONS (4)
  - DEMENTIA ALZHEIMER'S TYPE [None]
  - MEMORY IMPAIRMENT [None]
  - PARKINSON'S DISEASE [None]
  - SPEECH DISORDER [None]
